FAERS Safety Report 5433635-8 (Version None)
Quarter: 2007Q3

REPORT INFORMATION
  Report Type: 
  Country: None (occurrence: None)
  Receive Date: 20070828
  Receipt Date: 20070828
  Transmission Date: 20080115
  Serious: Yes (Other)
  Sender: FDA-Public Use
  Company Number: None

PATIENT
  Age: 22 Year
  Sex: Male

DRUGS (4)
  1. FLEET PREP KIT 3 [Suspect]
     Indication: BARIUM ENEMA
     Dosage: 45 ML;X1;PO
     Route: 048
     Dates: start: 20070724, end: 20070724
  2. FLEET PREP KIT 3 [Suspect]
  3. FLEET PREP KIT 3 [Suspect]
  4. FLEET PREP KIT 3 [Suspect]

REACTIONS (3)
  - DEHYDRATION [None]
  - FALL [None]
  - LOSS OF CONSCIOUSNESS [None]
